FAERS Safety Report 7468442-8 (Version None)
Quarter: 2011Q2

REPORT INFORMATION
  Report Type: 
  Country: None (occurrence: None)
  Receive Date: 20110509
  Receipt Date: 20100114
  Transmission Date: 20111010
  Serious: Yes (Hospitalization, Other)
  Sender: FDA-Public Use
  Company Number: DE-GENENTECH-318229

PATIENT
  Age: 73 Year
  Sex: Male

DRUGS (2)
  1. UNSPECIFIED MEDICATION [Concomitant]
     Indication: NASOPHARYNGITIS
     Dosage: UNK
  2. LUCENTIS [Suspect]
     Indication: AGE-RELATED MACULAR DEGENERATION
     Dosage: UNK
     Route: 031
     Dates: start: 20100203

REACTIONS (4)
  - VISUAL ACUITY REDUCED [None]
  - NASOPHARYNGITIS [None]
  - BLOOD TEST ABNORMAL [None]
  - INTESTINAL POLYP [None]
